FAERS Safety Report 4480974-3 (Version None)
Quarter: 2004Q4

REPORT INFORMATION
  Report Type: 
  Country: None (occurrence: None)
  Receive Date: 20041021
  Receipt Date: 20031216
  Transmission Date: 20050328
  Serious: Yes (Other)
  Sender: FDA-Public Use
  Company Number: US-AMGEN-US061532

PATIENT
  Sex: Female

DRUGS (8)
  1. ENBREL [Suspect]
     Indication: RHEUMATOID ARTHRITIS
     Route: 058
     Dates: start: 20030417, end: 20041008
  2. ARAVA [Concomitant]
     Route: 048
     Dates: start: 20031017, end: 20040401
  3. MOBIC [Concomitant]
     Dates: start: 20021201
  4. SYNTHROID [Concomitant]
  5. ATENOLOL [Concomitant]
  6. SINGULAIR [Concomitant]
  7. FLONASE [Concomitant]
  8. DETROL [Concomitant]

REACTIONS (1)
  - LIVER FUNCTION TEST ABNORMAL [None]
